FAERS Safety Report 4870013-4 (Version None)
Quarter: 2005Q4

REPORT INFORMATION
  Report Type: 
  Country: None (occurrence: None)
  Receive Date: 20051227
  Receipt Date: 20051213
  Transmission Date: 20060501
  Serious: Yes (Life-Threatening, Hospitalization, Disabling)
  Sender: FDA-Public Use
  Company Number: US-JNJFOC-20041101108

PATIENT
  Age: 51 Year
  Sex: Female
  Weight: 85.7298 kg

DRUGS (34)
  1. TOPAMAX [Suspect]
     Indication: BIPOLAR DISORDER
     Dosage: SEE IMAGE
     Route: 048
     Dates: start: 20041001, end: 20041025
  2. TOPAMAX [Suspect]
     Indication: DRUG THERAPY
     Dosage: SEE IMAGE
     Route: 048
     Dates: start: 20041001, end: 20041025
  3. TOPAMAX [Suspect]
     Indication: MIGRAINE
     Dosage: SEE IMAGE
     Route: 048
     Dates: start: 20041001, end: 20041025
  4. TOPAMAX [Suspect]
     Indication: WEIGHT DECREASED
     Dosage: SEE IMAGE
     Route: 048
     Dates: start: 20041001, end: 20041025
  5. TOPAMAX [Suspect]
     Indication: BIPOLAR DISORDER
     Dosage: SEE IMAGE
     Route: 048
     Dates: start: 20040201
  6. TOPAMAX [Suspect]
     Indication: DRUG THERAPY
     Dosage: SEE IMAGE
     Route: 048
     Dates: start: 20040201
  7. TOPAMAX [Suspect]
     Indication: MIGRAINE
     Dosage: SEE IMAGE
     Route: 048
     Dates: start: 20040201
  8. TOPAMAX [Suspect]
     Indication: WEIGHT DECREASED
     Dosage: SEE IMAGE
     Route: 048
     Dates: start: 20040201
  9. TOPAMAX [Suspect]
     Indication: BIPOLAR DISORDER
     Dosage: SEE IMAGE
     Route: 048
     Dates: start: 20040616
  10. TOPAMAX [Suspect]
     Indication: DRUG THERAPY
     Dosage: SEE IMAGE
     Route: 048
     Dates: start: 20040616
  11. TOPAMAX [Suspect]
     Indication: MIGRAINE
     Dosage: SEE IMAGE
     Route: 048
     Dates: start: 20040616
  12. TOPAMAX [Suspect]
     Indication: WEIGHT DECREASED
     Dosage: SEE IMAGE
     Route: 048
     Dates: start: 20040616
  13. TOPAMAX [Suspect]
     Indication: BIPOLAR DISORDER
     Dosage: SEE IMAGE
     Route: 048
     Dates: start: 20040903
  14. TOPAMAX [Suspect]
     Indication: DRUG THERAPY
     Dosage: SEE IMAGE
     Route: 048
     Dates: start: 20040903
  15. TOPAMAX [Suspect]
     Indication: MIGRAINE
     Dosage: SEE IMAGE
     Route: 048
     Dates: start: 20040903
  16. TOPAMAX [Suspect]
     Indication: WEIGHT DECREASED
     Dosage: SEE IMAGE
     Route: 048
     Dates: start: 20040903
  17. SEROQUEL [Concomitant]
  18. PROZAC [Concomitant]
  19. VICODIN [Concomitant]
  20. ATARAX [Concomitant]
  21. XANAX [Concomitant]
  22. PROTONIX [Concomitant]
  23. PRAVACHOL [Concomitant]
  24. ASA ENTERIC COATED (ACETYLSALICYLIC ACID) [Concomitant]
  25. PREVACID [Concomitant]
  26. LEVAQUIN [Concomitant]
  27. LOPID [Concomitant]
  28. NEXIUM [Concomitant]
  29. VIOKASE (PANCRELIPASE) [Concomitant]
  30. ALBUTEROL [Concomitant]
  31. ADVAIR DISKUS 100/50 [Concomitant]
  32. MYLICON (DIMETICONE, ACTIVATED) [Concomitant]
  33. LACTULOSE [Concomitant]
  34. TIGAN [Concomitant]

REACTIONS (8)
  - ALANINE AMINOTRANSFERASE INCREASED [None]
  - ASPARTATE AMINOTRANSFERASE INCREASED [None]
  - BLOOD ALKALINE PHOSPHATASE INCREASED [None]
  - BLOOD TRIGLYCERIDES INCREASED [None]
  - DISEASE RECURRENCE [None]
  - DIVERTICULITIS [None]
  - PANCREATITIS [None]
  - TREATMENT NONCOMPLIANCE [None]
